FAERS Safety Report 4526383-X (Version None)
Quarter: 2004Q4

REPORT INFORMATION
  Report Type: 
  Country: None (occurrence: None)
  Receive Date: 20041210
  Receipt Date: 20041201
  Transmission Date: 20050328
  Serious: Yes (Death, Hospitalization)
  Sender: FDA-Public Use
  Company Number: HQWYE773514OCT04

PATIENT
  Age: 51 Year
  Sex: Female

DRUGS (19)
  1. OROKEN (CEFIXIME, TABLET) [Suspect]
     Indication: PYREXIA
     Dosage: 200MG DAILY ORAL
     Route: 048
     Dates: start: 20040814, end: 20040814
  2. CIPROFLOXACIN HCL [Suspect]
     Dosage: ORAL
     Route: 048
     Dates: start: 20040101, end: 20040814
  3. LEVOTHYROXINE SODIUM [Concomitant]
  4. FLUCONAZOLE [Concomitant]
  5. VALACYCLOVIR HCL [Concomitant]
  6. INNOHEP [Concomitant]
  7. FORTUM (CEFTAZIDIME PENTAHYDRATE) [Concomitant]
  8. AUGMENTIN (AMOXICILLIN SODIUM/CLAVULANATE POTASSIUM) [Concomitant]
  9. PYOSTACINE (PRISTINAMYCIN) [Concomitant]
  10. CALCIPARINE [Concomitant]
  11. ROCEPHIN [Concomitant]
  12. FLAGYL [Concomitant]
  13. VINCRISTINE [Concomitant]
  14. MITOXANTRONE [Concomitant]
  15. CYTARABINE [Concomitant]
  16. DAUNORUBICIN HCL [Concomitant]
  17. OMEPRAZOLE [Concomitant]
  18. PRIMAXIN [Concomitant]
  19. PRIMAXIN [Concomitant]

REACTIONS (11)
  - ALANINE AMINOTRANSFERASE INCREASED [None]
  - ASPARTATE AMINOTRANSFERASE INCREASED [None]
  - BLOOD ALKALINE PHOSPHATASE INCREASED [None]
  - BLOOD BILIRUBIN INCREASED [None]
  - CATHETER RELATED INFECTION [None]
  - DIARRHOEA [None]
  - DRUG RASH WITH EOSINOPHILIA AND SYSTEMIC SYMPTOMS [None]
  - MULTI-ORGAN FAILURE [None]
  - PSEUDOMONAS INFECTION [None]
  - RENAL FAILURE ACUTE [None]
  - SHOCK [None]
